FAERS Safety Report 4994221-7 (Version None)
Quarter: 2006Q1

REPORT INFORMATION
  Report Type: 
  Country: None (occurrence: None)
  Receive Date: 20060313
  Receipt Date: 20050923
  Transmission Date: 20060701
  Serious: Yes (Other)
  Sender: FDA-Public Use
  Company Number: PHEH2005US10646

PATIENT
  Age: 53 Year
  Sex: Female

DRUGS (10)
  1. TRILEPTAL [Suspect]
     Indication: AFFECTIVE DISORDER
     Dosage: 300 MG,BID,ORAL; 600 MG, BID, ORAL
     Route: 048
     Dates: start: 20050812, end: 20050913
  2. TRILEPTAL [Suspect]
     Indication: AFFECTIVE DISORDER
     Dosage: 300 MG,BID,ORAL; 600 MG, BID, ORAL
     Route: 048
     Dates: start: 20050914
  3. KLONOPIN [Concomitant]
  4. LEVOTHROID [Concomitant]
  5. PREMARIN [Concomitant]
  6. NEXIUM [Concomitant]
  7. PAXIL [Concomitant]
  8. TRAZODONE HCL [Concomitant]
  9. RESTORIL [Concomitant]
  10. BUSPAR [Concomitant]

REACTIONS (13)
  - DIARRHOEA [None]
  - DYSKINESIA [None]
  - EMOTIONAL DISORDER [None]
  - FATIGUE [None]
  - GAIT DISTURBANCE [None]
  - GASTRITIS [None]
  - HEADACHE [None]
  - INSOMNIA [None]
  - NERVOUSNESS [None]
  - PANIC ATTACK [None]
  - THINKING ABNORMAL [None]
  - VISUAL DISTURBANCE [None]
  - WEIGHT INCREASED [None]
